FAERS Safety Report 5268999-1 (Version None)
Quarter: 2007Q1

REPORT INFORMATION
  Report Type: 
  Country: None (occurrence: None)
  Receive Date: 20061212
  Receipt Date: 20060329
  Transmission Date: 20070707
  Serious: No
  Sender: FDA-Public Use
  Company Number: 2006UW05522

PATIENT
  Age: 58 Year
  Sex: Male
  Weight: 90.718 kg

DRUGS (1)
  1. ZOLADEX [Suspect]
     Indication: PROSTATE CANCER STAGE III
     Dosage: 10.8 MG SQ
     Route: 058
     Dates: start: 20040901

REACTIONS (1)
  - MYOCARDIAL INFARCTION [None]
